FAERS Safety Report 11210288 (Version 1)
Quarter: 2015Q2

REPORT INFORMATION
  Report Type: Spontaneous
  Country: US (occurrence: US)
  Receive Date: 20150622
  Receipt Date: 20150622
  Transmission Date: 20150821
  Serious: No
  Sender: FDA-Public Use
  Company Number: US-ASTELLAS-2015US009707

PATIENT
  Sex: Female
  Weight: 44 kg

DRUGS (1)
  1. VESICARE [Suspect]
     Active Substance: SOLIFENACIN SUCCINATE
     Indication: HYPERTONIC BLADDER
     Route: 048
     Dates: start: 201502

REACTIONS (4)
  - Dry mouth [Not Recovered/Not Resolved]
  - Pollakiuria [Unknown]
  - Micturition urgency [Unknown]
  - Nocturia [Unknown]

NARRATIVE: CASE EVENT DATE: 2015
